FAERS Safety Report 4552679-1 (Version None)
Quarter: 2005Q1

REPORT INFORMATION
  Report Type: 
  Country: None (occurrence: None)
  Receive Date: 20050114
  Receipt Date: 20050107
  Transmission Date: 20050727
  Serious: Yes (Death)
  Sender: FDA-Public Use
  Company Number: PHBS2005PK00615

PATIENT
  Age: 37 Year
  Sex: Female

DRUGS (2)
  1. LOPRESSOR [Suspect]
     Indication: CARDIAC FAILURE
     Dosage: 6.25 MG, BID
  2. LOPRESSOR [Suspect]
     Dosage: 50 MG, BID

REACTIONS (1)
  - METABOLIC ACIDOSIS [None]
